FAERS Safety Report 8429649-6 (Version None)
Quarter: 2012Q2

REPORT INFORMATION
  Report Type: 
  Country: None (occurrence: None)
  Receive Date: 20120612
  Receipt Date: 20120605
  Transmission Date: 20120825
  Serious: Yes (Hospitalization)
  Sender: FDA-Public Use
  Company Number: US-TEVA-341772USA

PATIENT
  Sex: Female

DRUGS (10)
  1. IFOSORBMONO ER [Suspect]
     Dates: start: 20120509, end: 20120501
  2. HYDROCHLOROTHIAZIDE [Suspect]
     Dates: start: 20120509, end: 20120501
  3. LISINOPRIL [Suspect]
     Dates: start: 20120509, end: 20120501
  4. OMEPRAZOLE [Suspect]
     Dates: start: 20120509, end: 20120501
  5. METFORMIN HCL [Suspect]
     Dates: start: 20120509, end: 20120501
  6. LEVOTHYROXINE SODIUM [Suspect]
     Dates: start: 20120509, end: 20120501
  7. PRAVASTATIN [Suspect]
     Dates: start: 20120509, end: 20120501
  8. CITALOPRAM [Suspect]
     Dates: start: 20120509, end: 20120501
  9. AMLODIPINE [Suspect]
     Dates: start: 20120509, end: 20120501
  10. LORAZEPAM [Suspect]
     Dates: start: 20120509, end: 20120501

REACTIONS (1)
  - LOSS OF CONSCIOUSNESS [None]
